FAERS Safety Report 5659867-1 (Version None)
Quarter: 2008Q1

REPORT INFORMATION
  Report Type: 
  Country: None (occurrence: None)
  Receive Date: 20080311
  Receipt Date: 20070805
  Transmission Date: 20080703
  Serious: No
  Sender: FDA-Public Use
  Company Number: US-BAYER-200712509BCC

PATIENT
  Age: 72 Year
  Sex: Female
  Weight: 90 kg

DRUGS (6)
  1. ALEVE (CAPLET) [Suspect]
     Indication: BACK PAIN
     Dosage: TOTAL DAILY DOSE: 880 MG  UNIT DOSE: 220 MG
     Route: 048
     Dates: start: 20070803, end: 20070803
  2. ASPIRIN [Concomitant]
     Dosage: TOTAL DAILY DOSE: 81 MG  UNIT DOSE: 81 MG
  3. HYDROCHLOROTHIAZIDE [Concomitant]
  4. PREVACID [Concomitant]
  5. ZOCOR [Concomitant]
  6. COREG [Concomitant]

REACTIONS (1)
  - NO ADVERSE EVENT [None]
